FAERS Safety Report 7158994-X (Version None)
Quarter: 2010Q4

REPORT INFORMATION
  Report Type: 
  Country: None (occurrence: None)
  Receive Date: 20101214
  Receipt Date: 20100722
  Transmission Date: 20110411
  Serious: No
  Sender: FDA-Public Use
  Company Number: US-ASTRAZENECA-2010SE34268

PATIENT
  Age: 27689 Day
  Sex: Female
  Weight: 71.2 kg

DRUGS (9)
  1. ROSUVASTATIN [Suspect]
     Route: 048
  2. NIASPAN [Suspect]
     Route: 065
     Dates: start: 20100401, end: 20100601
  3. NIASPAN [Suspect]
     Route: 065
     Dates: start: 20100601
  4. NIASPAN [Suspect]
     Route: 065
  5. MINOXIDIL [Concomitant]
  6. LEVOTHYROXINE SODIUM [Concomitant]
  7. ACETYLSALICYLIC ACID [Concomitant]
  8. METOPROLOL [Concomitant]
  9. RAMIPRIL [Concomitant]

REACTIONS (5)
  - DIARRHOEA [None]
  - GASTRIC DISORDER [None]
  - MYALGIA [None]
  - NAUSEA [None]
  - PAIN IN EXTREMITY [None]
